FAERS Safety Report 6944369-2 (Version None)
Quarter: 2010Q3

REPORT INFORMATION
  Report Type: 
  Country: None (occurrence: None)
  Receive Date: 20100827
  Receipt Date: 20100823
  Transmission Date: 20110219
  Serious: Yes (Death)
  Sender: FDA-Public Use
  Company Number: US-SHIRE-SPV1-2010-01462

PATIENT
  Age: 8 Year
  Sex: Female

DRUGS (2)
  1. VYVANSE [Suspect]
     Indication: PRODUCT USED FOR UNKNOWN INDICATION
     Dosage: 100MG DAILY
     Route: 048
  2. VYVANSE [Suspect]
     Dosage: 70MG DAILY
     Route: 048

REACTIONS (2)
  - DEATH [None]
  - OVERDOSE [None]
